FAERS Safety Report 6375540-9 (Version None)
Quarter: 2009Q3

REPORT INFORMATION
  Report Type: 
  Country: None (occurrence: None)
  Receive Date: 20090924
  Receipt Date: 20090915
  Transmission Date: 20100115
  Serious: No
  Sender: FDA-Public Use
  Company Number: US-ELI_LILLY_AND_COMPANY-US200908004157

PATIENT
  Sex: Female
  Weight: 88.435 kg

DRUGS (4)
  1. FORTEO [Suspect]
     Indication: OSTEOPOROSIS
     Dosage: 20 UG, DAILY (1/D)
     Dates: start: 20080101, end: 20090701
  2. FORTEO [Suspect]
     Dosage: 20 UG, DAILY (1/D)
     Dates: start: 20090701
  3. FORTEO [Suspect]
     Dosage: 20 UG, DAILY (1/D)
  4. CALCIUM [Concomitant]
     Dates: start: 20080301

REACTIONS (2)
  - RETINAL DISORDER [None]
  - VISUAL ACUITY REDUCED [None]
